FAERS Safety Report 8229316-8 (Version None)
Quarter: 2012Q1

REPORT INFORMATION
  Report Type: 
  Country: None (occurrence: None)
  Receive Date: 20120322
  Receipt Date: 20120316
  Transmission Date: 20120608
  Serious: Yes (Life-Threatening, Hospitalization)
  Sender: FDA-Public Use
  Company Number: DE-ELI_LILLY_AND_COMPANY-DE201203005000

PATIENT
  Age: 65 Year
  Sex: Male

DRUGS (3)
  1. DIGITALIS TAB [Concomitant]
  2. EFFIENT [Suspect]
     Indication: PERCUTANEOUS CORONARY INTERVENTION
     Dosage: 10 MG, UNK
  3. ENOXAPARIN SODIUM [Concomitant]

REACTIONS (3)
  - THROMBOSIS IN DEVICE [None]
  - PAIN [None]
  - ELECTROCARDIOGRAM ST SEGMENT ELEVATION [None]
